FAERS Safety Report 16277106 (Version 2)
Quarter: 2019Q2

REPORT INFORMATION
  Report Type: Spontaneous
  Country: US (occurrence: US)
  Receive Date: 20190506
  Receipt Date: 20190628
  Transmission Date: 20190711
  Serious: No
  Sender: FDA-Public Use
  Company Number: US-PFIZER INC-2019188219

PATIENT
  Age: 56 Year
  Sex: Female

DRUGS (2)
  1. CITALOPRAM [Concomitant]
     Active Substance: CITALOPRAM HYDROBROMIDE
     Dosage: UNK
  2. CHANTIX [Suspect]
     Active Substance: VARENICLINE TARTRATE
     Indication: SMOKING CESSATION THERAPY
     Dosage: UNK [1 MG ONCE OR TWICE A DAY]
     Dates: start: 20190511

REACTIONS (3)
  - Pre-existing condition improved [Unknown]
  - Off label use [Unknown]
  - Therapeutic response unexpected [Unknown]
